FAERS Safety Report 10435616 (Version 1)
Quarter: 2014Q3

REPORT INFORMATION
  Report Type: Spontaneous
  Country: CH (occurrence: CH)
  Receive Date: 20140908
  Receipt Date: 20140908
  Transmission Date: 20150326
  Serious: Yes (Other)
  Sender: FDA-Public Use
  Company Number: CH-ROCHE-1457794

PATIENT
  Sex: Female

DRUGS (1)
  1. ROCEPHIN [Suspect]
     Active Substance: CEFTRIAXONE SODIUM
     Indication: LYME DISEASE
     Route: 042

REACTIONS (2)
  - Head titubation [Unknown]
  - Tremor [Unknown]

NARRATIVE: CASE EVENT DATE: 201403
